FAERS Safety Report 8943380 (Version 1)
Quarter: 2012Q4

REPORT INFORMATION
  Report Type: Report from Study
  Country: JP (occurrence: JP)
  Receive Date: 20121204
  Receipt Date: 20121204
  Transmission Date: 20130627
  Serious: Yes (Other)
  Sender: FDA-Public Use
  Company Number: JP-VERTEX PHARMACEUTICALS INC.-2012-025474

PATIENT
  Age: 54 Year
  Sex: Female

DRUGS (11)
  1. VX-950 (TELAPREVIR) [Suspect]
     Indication: CHRONIC HEPATITIS C
     Dosage: 1500 mg, qd
     Route: 048
     Dates: start: 20120814
  2. VX-950 (TELAPREVIR) [Suspect]
     Dosage: UNK
     Route: 048
     Dates: end: 20121105
  3. RIBAVIRIN [Suspect]
     Indication: CHRONIC HEPATITIS C
     Dosage: 400 mg, qd
     Route: 048
     Dates: start: 20120814
  4. RIBAVIRIN [Suspect]
     Dosage: UNK
     Route: 048
     Dates: end: 20121005
  5. RIBAVIRIN [Suspect]
     Dosage: 200 mg, qd
     Route: 048
     Dates: start: 20121006, end: 20121007
  6. RIBAVIRIN [Suspect]
     Dosage: 400 mg, qd
     Route: 048
     Dates: start: 20121102
  7. PEGINTERFERON ALFA-2B [Concomitant]
     Dosage: 1.5 ?g/kg, UNK
     Route: 058
     Dates: start: 20120814
  8. MERCAZOLE [Concomitant]
     Dosage: 10 mg, qd
     Route: 048
  9. RIKKUNSHITO [Concomitant]
     Dosage: 7.5 g, qd
     Route: 048
     Dates: start: 20120816
  10. ALLEGRA [Concomitant]
     Dosage: 120 mg, qd
     Route: 048
  11. ANTEBATE [Concomitant]
     Dosage: UNK, prn
     Route: 061

REACTIONS (1)
  - Neutrophil count decreased [Recovered/Resolved]
